FAERS Safety Report 8027719-8 (Version None)
Quarter: 2012Q1

REPORT INFORMATION
  Report Type: 
  Country: None (occurrence: None)
  Receive Date: 20120104
  Receipt Date: 20111220
  Transmission Date: 20120608
  Serious: Yes (Other)
  Sender: FDA-Public Use
  Company Number: LTI2011A00325

PATIENT
  Age: 58 Year
  Sex: Male

DRUGS (1)
  1. ACTOS [Suspect]
     Indication: TYPE 2 DIABETES MELLITUS
     Dosage: (1 DF) ORAL
     Route: 048
     Dates: end: 20080101

REACTIONS (1)
  - BLADDER CANCER [None]
